FAERS Safety Report 9194129 (Version 1)
Quarter: 2013Q1

REPORT INFORMATION
  Report Type: Report from Study
  Country: CA (occurrence: CA)
  Receive Date: 20130327
  Receipt Date: 20130327
  Transmission Date: 20140127
  Serious: Yes (Other)
  Sender: FDA-Public Use
  Company Number: CA-JNJFOC-20130314609

PATIENT
  Sex: Male
  Weight: 78 kg

DRUGS (4)
  1. SIMPONI [Suspect]
     Indication: ANKYLOSING SPONDYLITIS
     Route: 058
     Dates: start: 20110607
  2. SIMPONI [Suspect]
     Indication: ANKYLOSING SPONDYLITIS
     Route: 058
     Dates: start: 201302
  3. ZYPREXA [Concomitant]
     Route: 065
  4. IMURAN [Concomitant]
     Route: 065

REACTIONS (3)
  - Chest pain [Recovered/Resolved]
  - Heart rate increased [Recovered/Resolved]
  - Blood triglycerides increased [Recovered/Resolved]
